FAERS Safety Report 18165731 (Version 1)
Quarter: 2020Q3

REPORT INFORMATION
  Report Type: Spontaneous
  Country: NL (occurrence: NL)
  Receive Date: 20200819
  Receipt Date: 20200819
  Transmission Date: 20201103
  Serious: Yes (Other)
  Sender: FDA-Public Use
  Company Number: NL-SUN PHARMACEUTICAL INDUSTRIES LTD-2020RR-258033

PATIENT
  Sex: Female
  Weight: 58 kg

DRUGS (2)
  1. TIBOLON [Concomitant]
     Indication: PRODUCT USED FOR UNKNOWN INDICATION
     Dosage: TABLET, 2,5 MG (MILLIGRAM) ()
     Route: 065
  2. SERTRALINE [Suspect]
     Active Substance: SERTRALINE HYDROCHLORIDE
     Indication: PANIC ATTACK
     Dosage: 10 MILLIGRAM, DAILY
     Route: 065
     Dates: start: 20200513, end: 20200728

REACTIONS (1)
  - Urinary retention [Recovering/Resolving]
